FAERS Safety Report 11132722 (Version 5)
Quarter: 2015Q3

REPORT INFORMATION
  Report Type: Spontaneous
  Country: US (occurrence: US)
  Receive Date: 20150522
  Receipt Date: 20150806
  Transmission Date: 20151125
  Serious: Yes (Other)
  Sender: FDA-Public Use
  Company Number: US-GLAXOSMITHKLINE-US2015GSK068753

PATIENT
  Sex: Male

DRUGS (2)
  1. VOTRIENT [Suspect]
     Active Substance: PAZOPANIB HYDROCHLORIDE
     Indication: BONE CANCER
     Dosage: 800 MG, QD
     Route: 048
  2. VOTRIENT [Suspect]
     Active Substance: PAZOPANIB HYDROCHLORIDE
     Dosage: 400 MG, QD

REACTIONS (13)
  - Liver transplant [Unknown]
  - Haemoglobin decreased [Unknown]
  - Decreased appetite [Unknown]
  - Lung disorder [Unknown]
  - Pain [Recovering/Resolving]
  - Abdominal discomfort [Unknown]
  - Asthenia [Unknown]
  - Dyspnoea [Unknown]
  - Adverse drug reaction [Unknown]
  - Nephrectomy [Unknown]
  - Hip arthroplasty [Unknown]
  - Dysgeusia [Unknown]
  - Discomfort [Recovering/Resolving]
